FAERS Safety Report 5613000-0 (Version None)
Quarter: 2008Q1

REPORT INFORMATION
  Report Type: 
  Country: None (occurrence: None)
  Receive Date: 20080204
  Receipt Date: 20080123
  Transmission Date: 20080703
  Serious: Yes (Hospitalization)
  Sender: FDA-Public Use
  Company Number: US-RANBAXY-2008RR-12780

PATIENT

DRUGS (1)
  1. AMOXICILLIN [Suspect]
     Dosage: 500 MG, UNK
     Route: 048

REACTIONS (1)
  - MENINGITIS [None]
